FAERS Safety Report 13692301 (Version 2)
Quarter: 2017Q2

REPORT INFORMATION
  Report Type: Spontaneous
  Country: US (occurrence: US)
  Receive Date: 20170627
  Receipt Date: 20170627
  Transmission Date: 20170830
  Serious: No
  Sender: FDA-Public Use
  Company Number: US-ASTRAZENECA-2017SE64831

PATIENT
  Sex: Female

DRUGS (1)
  1. BYDUREON [Suspect]
     Active Substance: EXENATIDE
     Dosage: UNKNOWN
     Route: 058

REACTIONS (5)
  - Drug intolerance [Unknown]
  - Hypersensitivity [Unknown]
  - Malaise [Unknown]
  - Drug physiologic incompatibility [Unknown]
  - Immune system disorder [Unknown]
